FAERS Safety Report 10718873 (Version 2)
Quarter: 2015Q1

REPORT INFORMATION
  Report Type: Spontaneous
  Country: US (occurrence: US)
  Receive Date: 20150119
  Receipt Date: 20150119
  Transmission Date: 20150721
  Serious: No
  Sender: FDA-Public Use
  Company Number: US-UNITED THERAPEUTICS-UNT-2014-005705

PATIENT
  Sex: Female
  Weight: 70.3 kg

DRUGS (2)
  1. REVATIO [Concomitant]
     Active Substance: SILDENAFIL CITRATE
     Indication: PRODUCT USED FOR UNKNOWN INDICATION
  2. REMODULIN [Suspect]
     Active Substance: TREPROSTINIL
     Indication: COR PULMONALE CHRONIC
     Dosage: 0.076 ?G/KG/MIN, CONTINUING
     Route: 041
     Dates: start: 20061206

REACTIONS (4)
  - Abdominal discomfort [Unknown]
  - Headache [Unknown]
  - Migraine [Unknown]
  - Drug dose omission [Unknown]
